FAERS Safety Report 4548606-3 (Version None)
Quarter: 2004Q4

REPORT INFORMATION
  Report Type: 
  Country: None (occurrence: None)
  Receive Date: 20041227
  Receipt Date: 20040914
  Transmission Date: 20050328
  Serious: No
  Sender: FDA-Public Use
  Company Number: 04P-163-0273632-00

PATIENT
  Age: 69 Year
  Sex: Male
  Weight: 102 kg

DRUGS (11)
  1. HUMIRA [Suspect]
     Indication: RHEUMATOID ARTHRITIS
     Dosage: 40 MG, 1 IN 2 WK, SUBCUTANEOUS
     Route: 058
     Dates: start: 20040201
  2. ALENDRONATE SODIUM [Concomitant]
  3. TRAMADOL HCL [Concomitant]
  4. ANAPRIN [Concomitant]
  5. NAPROXEN [Concomitant]
  6. FUROSEMIDE [Concomitant]
  7. FOLIC ACID [Concomitant]
  8. FLUVASTATIN SODIUM [Concomitant]
  9. DIGOXIN [Concomitant]
  10. METHOTREXATE [Concomitant]
  11. UNSPECIFIED ANTIBIOTIC [Concomitant]

REACTIONS (1)
  - SUBCUTANEOUS ABSCESS [None]
